FAERS Safety Report 14164588 (Version 4)
Quarter: 2019Q1

REPORT INFORMATION
  Report Type: Spontaneous
  Country: US (occurrence: US)
  Receive Date: 20171107
  Receipt Date: 20190212
  Transmission Date: 20190417
  Serious: No
  Sender: FDA-Public Use
  Company Number: US-PFIZER INC-2017473965

PATIENT
  Age: 12 Year
  Sex: Male

DRUGS (11)
  1. VITAMIN D2 [Concomitant]
     Active Substance: ERGOCALCIFEROL
     Dosage: 50000 IU, WEEKLY (TAKE 1 CAPSULE EVERY WEEK FOR 28 DAYS)
     Route: 048
  2. BETAMETHASONE VALERATE. [Concomitant]
     Active Substance: BETAMETHASONE VALERATE
     Dosage: 2-3 TIMES A DAY FOR UP TO 10 DAYS
     Route: 061
  3. CETIRIZINE [Concomitant]
     Active Substance: CETIRIZINE HYDROCHLORIDE
     Indication: NASAL CONGESTION
  4. CETIRIZINE [Concomitant]
     Active Substance: CETIRIZINE HYDROCHLORIDE
     Indication: RHINORRHOEA
     Dosage: 10 ML, DAILY (FOR 30 DAYS)
     Route: 048
  5. GENOTROPIN [Suspect]
     Active Substance: SOMATROPIN
     Indication: GROWTH HORMONE DEFICIENCY
     Dosage: 0.8 MG, DAILY, (36 UNIT/ML), (AS DIRECTED FOR 90 DAYS)
     Route: 058
     Dates: start: 20161006
  6. GENOTROPIN [Suspect]
     Active Substance: SOMATROPIN
     Dosage: 1.0 MG, DAILY
  7. FERROUS SULFATE. [Concomitant]
     Active Substance: FERROUS SULFATE
     Dosage: 45 MG DAILY (TAKE 1 TABLET AT DINNER FOR 30 DAYS)
     Route: 048
  8. GENOTROPIN [Suspect]
     Active Substance: SOMATROPIN
     Dosage: 0.6 MG, DAILY (REPORTED AS DOSE REDUCED)
  9. GENOTROPIN [Suspect]
     Active Substance: SOMATROPIN
     Dosage: 0.6 MG, DAILY
     Dates: start: 20161029
  10. ALCOHOL WIPE [Concomitant]
     Active Substance: ISOPROPYL ALCOHOL
     Dosage: UNK
  11. FERROUS SULFATE. [Concomitant]
     Active Substance: FERROUS SULFATE
     Dosage: 325 MG (65 MG IRON), ONCE A DAY AT DINNER FOR 90 DAYS
     Route: 048

REACTIONS (15)
  - Irritability [Unknown]
  - Device malfunction [Unknown]
  - Red blood cell count increased [Unknown]
  - Mood swings [Unknown]
  - Blood alkaline phosphatase increased [Unknown]
  - Blood prolactin increased [Unknown]
  - Blood creatine decreased [Unknown]
  - Blood testosterone decreased [Unknown]
  - Monocyte percentage increased [Unknown]
  - Headache [Recovered/Resolved]
  - Rash [Unknown]
  - Product dose omission [Unknown]
  - Emotional distress [Unknown]
  - Mean cell volume decreased [Unknown]
  - Neutrophil percentage decreased [Unknown]

NARRATIVE: CASE EVENT DATE: 20180803
